FAERS Safety Report 7592854-5 (Version None)
Quarter: 2011Q3

REPORT INFORMATION
  Report Type: 
  Country: None (occurrence: None)
  Receive Date: 20110706
  Receipt Date: 20110702
  Transmission Date: 20111222
  Serious: No
  Sender: FDA-Public Use
  Company Number: US-PFIZER INC-2011148114

PATIENT
  Age: 68 Year
  Sex: Female
  Weight: 54.422 kg

DRUGS (2)
  1. PRISTIQ [Suspect]
     Indication: DEPRESSION
     Dosage: 50 MG, 1X/DAY
     Route: 048
     Dates: start: 20110630
  2. TROSPIUM [Concomitant]
     Dosage: UNK

REACTIONS (4)
  - HEADACHE [None]
  - FEELING ABNORMAL [None]
  - NASOPHARYNGITIS [None]
  - SINUS DISORDER [None]
